FAERS Safety Report 20435470 (Version 1)
Quarter: 2022Q1

REPORT INFORMATION
  Report Type: Spontaneous
  Country: CN (occurrence: CN)
  Receive Date: 20220206
  Receipt Date: 20220206
  Transmission Date: 20220423
  Serious: Yes (Hospitalization, Disabling, Other)
  Sender: FDA-Public Use
  Company Number: CN-ABBVIE-22K-035-4264615-00

PATIENT
  Age: 52 Year
  Sex: Female
  Weight: 55 kg

DRUGS (10)
  1. VALPROIC ACID [Suspect]
     Active Substance: VALPROIC ACID
     Indication: Epilepsy
     Dosage: BOLUS
     Route: 065
     Dates: start: 20180601, end: 20180604
  2. VALPROIC ACID [Suspect]
     Active Substance: VALPROIC ACID
     Route: 048
     Dates: start: 20180604, end: 20190212
  3. VALPROIC ACID [Suspect]
     Active Substance: VALPROIC ACID
     Route: 048
     Dates: start: 20180604, end: 20190212
  4. VALPROIC ACID [Suspect]
     Active Substance: VALPROIC ACID
     Route: 048
     Dates: start: 20180604, end: 20190212
  5. VALPROATE SODIUM [Suspect]
     Active Substance: VALPROATE SODIUM
     Indication: Epilepsy
     Route: 048
     Dates: start: 20180311, end: 20180522
  6. VALPROATE SODIUM [Suspect]
     Active Substance: VALPROATE SODIUM
     Route: 048
     Dates: start: 20180311, end: 20180522
  7. VALPROATE SODIUM [Suspect]
     Active Substance: VALPROATE SODIUM
     Route: 048
     Dates: start: 20180311, end: 20180522
  8. CARBAMAZEPINE [Suspect]
     Active Substance: CARBAMAZEPINE
     Indication: Epilepsy
     Route: 048
     Dates: start: 20180826, end: 20190212
  9. CARBAMAZEPINE [Suspect]
     Active Substance: CARBAMAZEPINE
     Route: 048
     Dates: start: 20180826, end: 20190212
  10. CARBAMAZEPINE [Suspect]
     Active Substance: CARBAMAZEPINE
     Route: 048
     Dates: start: 20180826, end: 20190212

REACTIONS (4)
  - Hyperbilirubinaemia [Unknown]
  - Alanine aminotransferase increased [Unknown]
  - Gamma-glutamyltransferase increased [Unknown]
  - Aspartate aminotransferase increased [Unknown]

NARRATIVE: CASE EVENT DATE: 20190211
